FAERS Safety Report 7654192-1 (Version None)
Quarter: 2011Q3

REPORT INFORMATION
  Report Type: 
  Country: None (occurrence: None)
  Receive Date: 20110803
  Receipt Date: 20110729
  Transmission Date: 20111222
  Serious: Yes (Life-Threatening, Hospitalization)
  Sender: FDA-Public Use
  Company Number: JP-SANOFI-AVENTIS-2010SA044620

PATIENT
  Age: 61 Year
  Sex: Female
  Weight: 47 kg

DRUGS (14)
  1. LASIX [Concomitant]
     Indication: ANGINA PECTORIS
     Route: 048
     Dates: end: 20100621
  2. MITIGLINIDE [Concomitant]
  3. PROPYLTHIOURACIL [Suspect]
     Indication: BASEDOW'S DISEASE
     Route: 048
     Dates: start: 20100617, end: 20100621
  4. CARVEDILOL [Concomitant]
     Indication: ANGINA PECTORIS
     Route: 048
     Dates: end: 20100621
  5. POTASSIUM IODIDE [Concomitant]
     Indication: BASEDOW'S DISEASE
     Route: 048
     Dates: start: 20100324
  6. PIOGLITAZONE [Concomitant]
  7. ASPIRIN [Concomitant]
     Indication: ANGINA PECTORIS
     Route: 048
     Dates: start: 20040101, end: 20100621
  8. NORVASC [Concomitant]
     Indication: HYPERTENSION
     Route: 048
     Dates: start: 20040101, end: 20100621
  9. GLICLAZIDE [Concomitant]
  10. VALSARTAN [Concomitant]
     Indication: HYPERTENSION
     Route: 048
     Dates: start: 20040101, end: 20100621
  11. CRESTOR [Concomitant]
     Indication: HYPERLIPIDAEMIA
     Route: 048
     Dates: end: 20100621
  12. AMARYL [Suspect]
     Indication: TYPE 2 DIABETES MELLITUS
     Dosage: DOSAGE UNKNOWN
     Route: 048
     Dates: start: 20100519, end: 20100607
  13. NEO-MERCAZOLE TAB [Suspect]
     Indication: BASEDOW'S DISEASE
     Route: 048
     Dates: start: 20100324, end: 20100616
  14. ENALAPRIL MALEATE [Concomitant]
     Indication: HYPERTENSION
     Route: 048
     Dates: start: 20040101, end: 20100621

REACTIONS (1)
  - STEVENS-JOHNSON SYNDROME [None]
